FAERS Safety Report 24325447 (Version 2)
Quarter: 2024Q3

REPORT INFORMATION
  Report Type: Spontaneous
  Country: DK (occurrence: DK)
  Receive Date: 20240917
  Receipt Date: 20240924
  Transmission Date: 20241017
  Serious: Yes (Hospitalization)
  Sender: AMGEN
  Company Number: DK-002147023-NVSC2024DK166328

PATIENT
  Age: 12 Month
  Sex: Female
  Weight: 11 kg

DRUGS (1)
  1. AIMOVIG [Suspect]
     Active Substance: ERENUMAB-AOOE
     Indication: Product used for unknown indication
     Dosage: 140 MG (TRANSPLACENTAL)
     Route: 050

REACTIONS (1)
  - Infection [Unknown]
